FAERS Safety Report 4967506-8 (Version None)
Quarter: 2006Q2

REPORT INFORMATION
  Report Type: 
  Country: None (occurrence: None)
  Receive Date: 20060404
  Receipt Date: 20060323
  Transmission Date: 20061013
  Serious: Yes (Other)
  Sender: FDA-Public Use
  Company Number: GXKR2006DE01733

PATIENT
  Age: 73 Year
  Sex: Female

DRUGS (3)
  1. CLARITHROMYCIN [Suspect]
     Dosage: 250 MG, BID, ORAL
     Route: 048
     Dates: start: 20060101, end: 20060101
  2. VERAPAMIL [Concomitant]
  3. XANEF (ENALAPRIL MALEATE) [Concomitant]

REACTIONS (1)
  - LOSS OF CONSCIOUSNESS [None]
